FAERS Safety Report 7967722-7 (Version None)
Quarter: 2011Q4

REPORT INFORMATION
  Report Type: 
  Country: None (occurrence: None)
  Receive Date: 20111209
  Receipt Date: 20111209
  Transmission Date: 20120403
  Serious: Yes (Hospitalization)
  Sender: FDA-Public Use
  Company Number: None

PATIENT
  Age: 44 Year
  Sex: Female
  Weight: 97.068 kg

DRUGS (1)
  1. SERTRALINE HYDROCHLORIDE [Suspect]
     Indication: DEPRESSION
     Dosage: 2 TABLET ONCE DAILEY
     Route: 048
     Dates: start: 20110712, end: 20111111

REACTIONS (9)
  - IRRITABILITY [None]
  - DYSTONIA [None]
  - PRURITUS [None]
  - ANGER [None]
  - MUSCLE TWITCHING [None]
  - AGITATION [None]
  - HYPERTENSION [None]
  - TREMOR [None]
  - CONVERSION DISORDER [None]
